FAERS Safety Report 5741393-2 (Version None)
Quarter: 2008Q2

REPORT INFORMATION
  Report Type: 
  Country: None (occurrence: None)
  Receive Date: 20080514
  Receipt Date: 20080502
  Transmission Date: 20081010
  Serious: Yes (Death, Hospitalization)
  Sender: FDA-Public Use
  Company Number: 2008-01505

PATIENT
  Age: 76 Year
  Sex: Male
  Weight: 52 kg

DRUGS (16)
  1. VELCADE [Suspect]
     Indication: MULTIPLE MYELOMA
     Dosage: 1.3 MG/M2, INTRAVENOUS
     Route: 042
     Dates: start: 20080306, end: 20080314
  2. DEXAMETHASONE TAB [Suspect]
     Indication: MULTIPLE MYELOMA
     Dosage: 20 MG, ORAL
     Route: 048
     Dates: start: 20080306, end: 20080315
  3. LORAZEPAM [Concomitant]
  4. LASIX [Concomitant]
  5. ODRIK (TRANDOLAPRIL) [Concomitant]
  6. VASTAC [Concomitant]
  7. DIANTALVIC [Concomitant]
  8. DIALGIREX (PARACETAMOL, DEXTROPROPOXYPHENE HYDROCHLORIDE) [Concomitant]
  9. BONIVA [Concomitant]
  10. KARDEGIC (ACETYLSALICYLATE LYSINE) [Concomitant]
  11. BACTRIN (SULFAMETHOXAZOLE, TRIMETHOPRIM) [Concomitant]
  12. VALACYCLOVIR HCL [Concomitant]
  13. DICETEL (PINAVERIUM BROMIDE) [Concomitant]
  14. OMEPRAZOLE [Concomitant]
  15. BEDELIX (MONTMORILLONITE) [Concomitant]
  16. NEORECORMON (EPOETIN BETA) [Concomitant]

REACTIONS (6)
  - BLOOD VISCOSITY INCREASED [None]
  - CONFUSIONAL STATE [None]
  - HYPERCALCAEMIA [None]
  - MALIGNANT NEOPLASM PROGRESSION [None]
  - MULTIPLE MYELOMA [None]
  - PROTEIN TOTAL INCREASED [None]
